FAERS Safety Report 6394239-6 (Version None)
Quarter: 2009Q4

REPORT INFORMATION
  Report Type: 
  Country: None (occurrence: None)
  Receive Date: 20091008
  Receipt Date: 20091001
  Transmission Date: 20100525
  Serious: Yes (Death)
  Sender: FDA-Public Use
  Company Number: US-GILEAD-2009-0024054

PATIENT
  Sex: Female
  Weight: 49.94 kg

DRUGS (12)
  1. LETAIRIS [Suspect]
     Indication: PULMONARY ARTERIAL HYPERTENSION
     Route: 048
     Dates: start: 20081112
  2. OXYGEN [Concomitant]
  3. COUMADIN [Concomitant]
  4. LASIX [Concomitant]
  5. COZAAR [Concomitant]
  6. PROCARDIA XL [Concomitant]
  7. PLAVIX [Concomitant]
  8. PREDNISONE [Concomitant]
  9. ATIVAN [Concomitant]
  10. NEXIUM [Concomitant]
  11. K-DUR [Concomitant]
  12. VITAMIN D [Concomitant]

REACTIONS (2)
  - INTERSTITIAL LUNG DISEASE [None]
  - RESPIRATORY FAILURE [None]
